FAERS Safety Report 8247310-8 (Version None)
Quarter: 2012Q1

REPORT INFORMATION
  Report Type: 
  Country: None (occurrence: None)
  Receive Date: 20120330
  Receipt Date: 20120316
  Transmission Date: 20120608
  Serious: Yes (Life-Threatening, Hospitalization, Other)
  Sender: FDA-Public Use
  Company Number: JP-ROCHE-767038

PATIENT
  Sex: Female
  Weight: 37 kg

DRUGS (4)
  1. RHEUMATREX [Suspect]
     Indication: RHEUMATOID ARTHRITIS
     Route: 048
  2. CELECOXIB [Concomitant]
     Dosage: REPORTED AS: CELECOX
     Route: 048
  3. ACTEMRA [Suspect]
     Indication: RHEUMATOID ARTHRITIS
     Route: 041
     Dates: start: 20110120, end: 20110217
  4. RABEPRAZOLE SODIUM [Concomitant]
     Route: 048

REACTIONS (12)
  - ARTERITIS INFECTIVE [None]
  - ASCITES [None]
  - SUBCUTANEOUS ABSCESS [None]
  - BONE ABSCESS [None]
  - MEDIASTINITIS [None]
  - DISSEMINATED INTRAVASCULAR COAGULATION [None]
  - ABSCESS LIMB [None]
  - SEPSIS [None]
  - ATELECTASIS [None]
  - PLEURAL EFFUSION [None]
  - PERICARDIAL EFFUSION [None]
  - PNEUMONIA [None]
